FAERS Safety Report 8965870 (Version 1)
Quarter: 2012Q4

REPORT INFORMATION
  Report Type: Spontaneous
  Country: US (occurrence: None)
  Receive Date: 20121213
  Receipt Date: 20121213
  Transmission Date: 20130627
  Serious: No
  Sender: FDA-Public Use
  Company Number: None

PATIENT
  Age: 45 Year
  Sex: Female

DRUGS (1)
  1. AFINITOR 10MG NOVARTIS [Suspect]
     Indication: MALIGNANT BREAST NEOPLASM
     Dosage: 10mg daily po
     Route: 048
     Dates: start: 20121114

REACTIONS (9)
  - Stomatitis [None]
  - Glossodynia [None]
  - Abdominal pain upper [None]
  - Faecal incontinence [None]
  - Muscle spasms [None]
  - Abdominal discomfort [None]
  - Nausea [None]
  - Skin exfoliation [None]
  - Pain in extremity [None]
